FAERS Safety Report 10507651 (Version 2)
Quarter: 2015Q2

REPORT INFORMATION
  Report Type: Spontaneous
  Country: TW (occurrence: TW)
  Receive Date: 20141009
  Receipt Date: 20150420
  Transmission Date: 20150821
  Serious: Yes (Hospitalization)
  Sender: FDA-Public Use
  Company Number: TW-JNJFOC-20141001397

PATIENT
  Age: 72 Year
  Sex: Female
  Weight: 47 kg

DRUGS (13)
  1. LIDOCAINE. [Concomitant]
     Active Substance: LIDOCAINE
     Indication: PRODUCT USED FOR UNKNOWN INDICATION
     Route: 065
  2. MELOXICAM. [Concomitant]
     Active Substance: MELOXICAM
     Route: 048
  3. RANITIDINE [Concomitant]
     Active Substance: RANITIDINE\RANITIDINE HYDROCHLORIDE
     Route: 048
  4. PLAQUENIL [Concomitant]
     Active Substance: HYDROXYCHLOROQUINE SULFATE
     Route: 048
  5. ESTAZOLAM. [Concomitant]
     Active Substance: ESTAZOLAM
     Route: 048
  6. ACETYLCYSTEINE. [Concomitant]
     Active Substance: ACETYLCYSTEINE
     Route: 048
  7. FOLIC ACID. [Concomitant]
     Active Substance: FOLIC ACID
     Route: 048
  8. PREDNISOLONE. [Concomitant]
     Active Substance: PREDNISOLONE
     Route: 048
  9. ALPRAZOLAM. [Concomitant]
     Active Substance: ALPRAZOLAM
     Route: 048
  10. STROCAIN [Concomitant]
     Active Substance: OXETHAZAINE
     Route: 048
  11. TRIAMCINOLONE [Concomitant]
     Active Substance: TRIAMCINOLONE
     Indication: PRODUCT USED FOR UNKNOWN INDICATION
     Route: 030
  12. SIMPONI [Suspect]
     Active Substance: GOLIMUMAB
     Indication: RHEUMATOID ARTHRITIS
     Route: 058
     Dates: start: 20140328
  13. AMLODIPINE [Concomitant]
     Active Substance: AMLODIPINE BESYLATE
     Route: 048

REACTIONS (6)
  - Renal impairment [Unknown]
  - Arthralgia [Recovering/Resolving]
  - Back pain [Unknown]
  - Pain in extremity [Unknown]
  - Haemoglobin decreased [Unknown]
  - Malaise [Unknown]

NARRATIVE: CASE EVENT DATE: 2014
